FAERS Safety Report 10257687 (Version 1)
Quarter: 2014Q2

REPORT INFORMATION
  Report Type: Spontaneous
  Country: US (occurrence: US)
  Receive Date: 20140625
  Receipt Date: 20140625
  Transmission Date: 20141212
  Serious: Yes (Other)
  Sender: FDA-Public Use
  Company Number: US-GLENMARK GENERICS (EUROPE) LTD-2014GMK009927

PATIENT
  Sex: Female

DRUGS (1)
  1. LEVOCETIRIZINE TABLETS [Suspect]
     Indication: HYPERSENSITIVITY
     Dosage: UNK
     Route: 048
     Dates: start: 201403

REACTIONS (2)
  - Coeliac disease [Unknown]
  - Rash [Unknown]
